FAERS Safety Report 8125077-1 (Version None)
Quarter: 2012Q1

REPORT INFORMATION
  Report Type: 
  Country: None (occurrence: None)
  Receive Date: 20120209
  Receipt Date: 20120202
  Transmission Date: 20120608
  Serious: Yes (Life-Threatening, Hospitalization)
  Sender: FDA-Public Use
  Company Number: JP-ROCHE-1002152

PATIENT
  Sex: Male

DRUGS (8)
  1. XELODA [Suspect]
     Indication: COLON CANCER METASTATIC
     Route: 048
     Dates: start: 20100510
  2. OXALIPLATIN [Concomitant]
     Indication: COLON CANCER METASTATIC
     Dosage: DOSAGE IS UNCERTAIN.
     Route: 041
     Dates: start: 20100510
  3. MAGMITT [Concomitant]
     Route: 048
  4. MUCOSTA [Concomitant]
     Dosage: DOSAGE IS UNCERTAIN.
     Route: 048
  5. XELODA [Suspect]
     Route: 048
     Dates: end: 20110913
  6. AVASTIN [Suspect]
     Indication: COLON CANCER METASTATIC
     Route: 041
     Dates: start: 20100510, end: 20110913
  7. FAMOTIDINE [Concomitant]
     Route: 048
  8. LOXONIN [Concomitant]
     Dosage: DOSAGE IS UNCERTAIN.
     Route: 048

REACTIONS (7)
  - HEPATIC FUNCTION ABNORMAL [None]
  - DRUG INEFFECTIVE [None]
  - JAUNDICE [None]
  - PYREXIA [None]
  - ASCITES [None]
  - NAUSEA [None]
  - PRURITUS GENERALISED [None]
